FAERS Safety Report 4625715-1 (Version None)
Quarter: 2005Q1

REPORT INFORMATION
  Report Type: 
  Country: None (occurrence: None)
  Receive Date: 20050330
  Receipt Date: 20050315
  Transmission Date: 20050727
  Serious: Yes (Hospitalization)
  Sender: FDA-Public Use
  Company Number: FI-2004-025325

PATIENT
  Age: 38 Year
  Sex: Female

DRUGS (9)
  1. BETAFERON VS. PLACEBO S.C. (BETAFERON (SH Y 579E) INJECTION, 250UG [Suspect]
     Indication: MULTIPLE SCLEROSIS
     Dosage: 8 MIU, EVERY 2D, SUBCUTANEOUS
     Route: 058
     Dates: start: 20030213, end: 20040512
  2. PLACEBO S.C. (BETAFERON (SH Y 579E)) INJECTION, 250UG [Suspect]
  3. PARACETAMOL [Concomitant]
  4. VITAMINE C [Concomitant]
  5. METHYLPREDNISOLONE [Concomitant]
  6. LANSOPRAZOLE [Concomitant]
  7. IBUPROFEN [Concomitant]
  8. LIDOCAINE [Concomitant]
  9. OFTAN (POLYVINYL ALCOHOL, BENZALKONIUM CHLORIDE) [Concomitant]

REACTIONS (24)
  - ACNE [None]
  - AGGRESSION [None]
  - AGITATION [None]
  - ANXIETY [None]
  - CRYING [None]
  - DELUSION [None]
  - DEPRESSION [None]
  - DIARRHOEA [None]
  - DISORIENTATION [None]
  - DRUG HYPERSENSITIVITY [None]
  - FATIGUE [None]
  - HEADACHE [None]
  - INCOHERENT [None]
  - INFLUENZA [None]
  - INFLUENZA LIKE ILLNESS [None]
  - INJECTION SITE ERYTHEMA [None]
  - INSOMNIA [None]
  - IRRITABILITY [None]
  - LACRIMATION INCREASED [None]
  - MOOD SWINGS [None]
  - PARANOIA [None]
  - REFUSAL OF TREATMENT BY PATIENT [None]
  - SOMNOLENCE [None]
  - TRANSIENT PSYCHOSIS [None]
